FAERS Safety Report 7319910-0 (Version None)
Quarter: 2011Q1

REPORT INFORMATION
  Report Type: 
  Country: None (occurrence: None)
  Receive Date: 20110228
  Receipt Date: 20101202
  Transmission Date: 20110831
  Serious: No
  Sender: FDA-Public Use
  Company Number: A0897414A

PATIENT
  Age: 29 Year
  Sex: Male

DRUGS (3)
  1. ABILIFY [Suspect]
  2. WELLBUTRIN XL [Concomitant]
  3. LAMICTAL [Suspect]
     Indication: BIPOLAR DISORDER
     Dosage: 100MG TWICE PER DAY
     Route: 048
     Dates: start: 20091201

REACTIONS (1)
  - RASH [None]
